FAERS Safety Report 19447393 (Version 1)
Quarter: 2021Q2

REPORT INFORMATION
  Report Type: Spontaneous
  Country: CA (occurrence: CA)
  Receive Date: 20210622
  Receipt Date: 20210622
  Transmission Date: 20210717
  Serious: Yes (Hospitalization)
  Sender: FDA-Public Use
  Company Number: CA-ROCHE-2850362

PATIENT
  Age: 17 Year
  Sex: Female
  Weight: 52 kg

DRUGS (14)
  1. CALCIUM [Concomitant]
     Active Substance: CALCIUM
  2. PIPERACILLIN AND TAZOBACTAM [Concomitant]
     Active Substance: PIPERACILLIN SODIUM\TAZOBACTAM SODIUM
  3. PREDNISONE. [Concomitant]
     Active Substance: PREDNISONE
  4. CELLCEPT [Suspect]
     Active Substance: MYCOPHENOLATE MOFETIL\MYCOPHENOLATE MOFETIL HYDROCHLORIDE
     Indication: KIDNEY TRANSPLANT REJECTION
     Route: 048
  5. ARANESP [Concomitant]
     Active Substance: DARBEPOETIN ALFA
  6. SEVELAMER [Concomitant]
     Active Substance: SEVELAMER
  7. ONE ALPHA [Concomitant]
     Active Substance: ALFACALCIDOL
  8. IRON [Concomitant]
     Active Substance: IRON
  9. LABETALOL [Concomitant]
     Active Substance: LABETALOL\LABETALOL HYDROCHLORIDE
  10. PRAZOSIN. [Concomitant]
     Active Substance: PRAZOSIN
  11. SODIUM [Concomitant]
     Active Substance: SODIUM
  12. ENALAPRIL [Concomitant]
     Active Substance: ENALAPRIL
  13. METHYLPHENIDATE. [Concomitant]
     Active Substance: METHYLPHENIDATE
  14. TACROLIMUS. [Concomitant]
     Active Substance: TACROLIMUS

REACTIONS (4)
  - Ulcer [Recovered/Resolved]
  - Gastritis [Recovered/Resolved]
  - Rectal haemorrhage [Recovered/Resolved]
  - Vomiting [Recovered/Resolved]
